FAERS Safety Report 17376987 (Version 1)
Quarter: 2020Q1

REPORT INFORMATION
  Report Type: Spontaneous
  Country: US (occurrence: US)
  Receive Date: 20200205
  Receipt Date: 20200205
  Transmission Date: 20200409
  Serious: Yes (Life-Threatening, Hospitalization)
  Sender: FDA-Public Use
  Company Number: None

PATIENT
  Age: 42 Year
  Sex: Male
  Weight: 72 kg

DRUGS (5)
  1. TRIKAFTA [Suspect]
     Active Substance: ELEXACAFTOR\IVACAFTOR\TEZACAFTOR
     Indication: CYSTIC FIBROSIS
     Route: 048
     Dates: start: 20200114, end: 20200125
  2. NICOTINE PATCH 21MG [Concomitant]
  3. DULERA 200/5 INHALER [Concomitant]
  4. MULTIVITAMIN [Concomitant]
     Active Substance: VITAMINS
  5. CREON [Concomitant]
     Active Substance: PANCRELIPASE AMYLASE\PANCRELIPASE LIPASE\PANCRELIPASE PROTEASE

REACTIONS (9)
  - Psychotic disorder [None]
  - Hallucinations, mixed [None]
  - Oligodipsia [None]
  - Disorientation [None]
  - Delusion [None]
  - Dysphagia [None]
  - Agitation [None]
  - Aggression [None]
  - Hypothermia [None]

NARRATIVE: CASE EVENT DATE: 20200128
